FAERS Safety Report 5815519-6 (Version None)
Quarter: 2008Q3

REPORT INFORMATION
  Report Type: 
  Country: None (occurrence: None)
  Receive Date: 20080718
  Receipt Date: 20080707
  Transmission Date: 20090109
  Serious: Yes (Other)
  Sender: FDA-Public Use
  Company Number: US-PFIZER INC-2008057483

PATIENT
  Sex: Female

DRUGS (1)
  1. LYRICA [Suspect]
     Indication: FIBROMYALGIA
     Route: 048

REACTIONS (3)
  - MUCOSAL INFLAMMATION [None]
  - SKIN LESION [None]
  - WEIGHT DECREASED [None]
